FAERS Safety Report 8258845-6 (Version None)
Quarter: 2012Q2

REPORT INFORMATION
  Report Type: 
  Country: None (occurrence: None)
  Receive Date: 20120403
  Receipt Date: 20120403
  Transmission Date: 20120825
  Serious: Yes (Hospitalization)
  Sender: FDA-Public Use
  Company Number: None

PATIENT
  Age: 61 Year
  Sex: Male

DRUGS (2)
  1. RIBASPHERE [Suspect]
     Indication: HEPATITIS C
     Dosage: 600MG BID PO
     Route: 048
     Dates: start: 20120127
  2. PEG-INTRON 150 MERCK [Suspect]
     Indication: HEPATITIS C
     Dosage: 150 MCG ONCE A WEEK SQ
     Route: 058
     Dates: start: 20120127, end: 20120208

REACTIONS (3)
  - NEUTROPENIA [None]
  - ANAEMIA [None]
  - WHITE BLOOD CELL COUNT DECREASED [None]
